FAERS Safety Report 8870981 (Version 1)
Quarter: 2012Q4

REPORT INFORMATION
  Report Type: 
  Country: US (occurrence: US)
  Receive Date: 20121026
  Receipt Date: 20121026
  Transmission Date: 20130627
  Serious: No
  Sender: FDA-Public Use
  Company Number: US-AMGEN-USASP2012043226

PATIENT
  Age: 64 Year
  Sex: Female
  Weight: 85.71 kg

DRUGS (16)
  1. ENBREL [Suspect]
     Indication: PRODUCT USED FOR UNKNOWN INDICATION
     Dosage: 50 mg, qwk
     Route: 058
  2. PLAQUENIL                          /00072602/ [Concomitant]
     Dosage: 200 mg, UNK
  3. PREDNISONE [Concomitant]
     Dosage: 1 mg, UNK
  4. ARAVA [Concomitant]
     Dosage: 10 mg, UNK
  5. LISINOPRIL [Concomitant]
     Dosage: 10 mg, UNK
  6. MINOCYCLINE [Concomitant]
     Dosage: 50 mg, UNK
  7. LEXAPRO [Concomitant]
     Dosage: 10 mg, UNK
  8. ACIDOPHILUS [Concomitant]
     Dosage: UNK
  9. FLAXSEED OIL [Concomitant]
     Dosage: 1000 mg, UNK
  10. LUNESTA [Concomitant]
     Dosage: 1 mg, UNK
  11. CALCIUM [Concomitant]
     Dosage: 500 mg, UNK
  12. OSTEO BI-FLEX [Concomitant]
     Dosage: Advanced,UNK
  13. MULTIVITAMIN                       /00097801/ [Concomitant]
     Dosage: UNK
  14. FOLBIC [Concomitant]
     Dosage: UNK
  15. NIACIN [Concomitant]
     Dosage: 400 mg, UNK
  16. MAGNESIUM [Concomitant]
     Dosage: 300 mg, UNK

REACTIONS (1)
  - Pain in extremity [Unknown]
